FAERS Safety Report 4492958-X (Version None)
Quarter: 2004Q4

REPORT INFORMATION
  Report Type: 
  Country: None (occurrence: None)
  Receive Date: 20041102
  Receipt Date: 20041008
  Transmission Date: 20050328
  Serious: Yes (Death)
  Sender: FDA-Public Use
  Company Number: 9126

PATIENT

DRUGS (3)
  1. METHOTREXATE [Suspect]
     Indication: CENTRAL NERVOUS SYSTEM LYMPHOMA
  2. BUSULFAN [Suspect]
     Dosage: 16 MG/KG
  3. THIOTEPA [Suspect]
     Dosage: 10 MG/KG

REACTIONS (1)
  - LEUKOENCEPHALOPATHY [None]
